FAERS Safety Report 12767189 (Version 1)
Quarter: 2016Q3

REPORT INFORMATION
  Report Type: Spontaneous
  Country: US (occurrence: US)
  Receive Date: 20160921
  Receipt Date: 20160921
  Transmission Date: 20161109
  Serious: No
  Sender: FDA-Public Use
  Company Number: US-PFIZER INC-2016438342

PATIENT
  Age: 60 Year
  Sex: Female
  Weight: 89.36 kg

DRUGS (1)
  1. PROVERA [Suspect]
     Active Substance: MEDROXYPROGESTERONE ACETATE
     Indication: AMENORRHOEA

REACTIONS (3)
  - Product use issue [Unknown]
  - Menstrual disorder [Unknown]
  - Asthenia [Unknown]
